FAERS Safety Report 20290073 (Version 3)
Quarter: 2022Q1

REPORT INFORMATION
  Report Type: Spontaneous
  Country: PL (occurrence: PL)
  Receive Date: 20220104
  Receipt Date: 20220303
  Transmission Date: 20220423
  Serious: Yes (Life-Threatening, Hospitalization, Other)
  Sender: FDA-Public Use
  Company Number: PL-GLPHARMA-21.1320

PATIENT
  Age: 42 Year
  Sex: Female

DRUGS (27)
  1. QUETIAPINE [Suspect]
     Active Substance: QUETIAPINE
     Indication: Bipolar disorder
     Dosage: 100 MILLIGRAM, QD AN IMMEDIATE-RELEASE FORMULATION
  2. QUETIAPINE [Suspect]
     Active Substance: QUETIAPINE
     Indication: Depression
     Dosage: UNK UNK, UP TO 600MG/DAY, START --2015
  3. QUETIAPINE [Suspect]
     Active Substance: QUETIAPINE
     Dosage: UNK UNK, UP TO 700 MG PER DAY, START JUL-2021
  4. QUETIAPINE [Suspect]
     Active Substance: QUETIAPINE
     Dosage: 400 MILLIGRAM, QD EXTENDED-RELEASE
  5. QUETIAPINE [Suspect]
     Active Substance: QUETIAPINE
     Dosage: UP TO 700 MG DAILY, START --2021
  6. QUETIAPINE [Suspect]
     Active Substance: QUETIAPINE
     Dosage: 600 MILLIGRAM, QD
  7. QUETIAPINE [Suspect]
     Active Substance: QUETIAPINE
     Dosage: 500 MG,1D(EXTENDED-RELEASE 400 MG PER DAY+100 MG, START --2017
  8. MIRTAZAPINE [Suspect]
     Active Substance: MIRTAZAPINE
     Indication: Depression
     Dosage: UNK UNK, QD (UP TO 30 MG, QD)
     Dates: start: 2012
  9. MIRTAZAPINE [Suspect]
     Active Substance: MIRTAZAPINE
     Dosage: 30 MILLIGRAM, QD
  10. OLANZAPINE [Suspect]
     Active Substance: OLANZAPINE
     Indication: Bipolar disorder
     Dosage: 20 MILLIGRAM, HS
     Dates: start: 2013
  11. LAMOTRIGINE [Suspect]
     Active Substance: LAMOTRIGINE
     Indication: Mental status changes
     Dosage: 600 MILLIGRAM, BID (2 TIMES 600 MG)
     Dates: start: 2013
  12. LAMOTRIGINE [Suspect]
     Active Substance: LAMOTRIGINE
     Indication: Bipolar disorder
     Dosage: 200 MILLIGRAM, QD
     Route: 065
  13. LAMOTRIGINE [Suspect]
     Active Substance: LAMOTRIGINE
     Dosage: 100 MILLIGRAM, BID, START JUL-2017
  14. LAMOTRIGINE [Suspect]
     Active Substance: LAMOTRIGINE
     Dosage: 200 MILLIGRAM, BID
     Route: 065
  15. LAMOTRIGINE [Suspect]
     Active Substance: LAMOTRIGINE
     Dosage: 2X100 MG PER DAY, START 2017
  16. VENLAFAXINE [Suspect]
     Active Substance: VENLAFAXINE HYDROCHLORIDE
     Indication: Depression
     Dosage: DOSES UPTO 75 MG PER DAY
     Dates: start: 2012
  17. VENLAFAXINE [Suspect]
     Active Substance: VENLAFAXINE HYDROCHLORIDE
     Dosage: 75 MILLIGRAM, QD
  18. LITHIUM [Suspect]
     Active Substance: LITHIUM
     Indication: Bipolar disorder
     Dosage: 1000 MILLIGRAM, QD GRADUALLY INCREASED TO 1000 MG, START 2017
  19. LITHIUM [Suspect]
     Active Substance: LITHIUM
     Indication: Mental status changes
     Dosage: 1000 MILLIGRAM, QD, 1000 MG, 1D
  20. CARBAMAZEPINE [Suspect]
     Active Substance: CARBAMAZEPINE
     Indication: Bipolar disorder
     Dosage: UNK (DOSE OF UPTO 600 MG PER DAY)
     Dates: start: 2013
  21. CARBAMAZEPINE [Suspect]
     Active Substance: CARBAMAZEPINE
     Dosage: 600 MILLIGRAM, BID
     Dates: start: 201707
  22. CARBAMAZEPINE [Suspect]
     Active Substance: CARBAMAZEPINE
     Dosage: 2X600 MG PER DAY
     Dates: start: 2017
  23. CARBAMAZEPINE [Suspect]
     Active Substance: CARBAMAZEPINE
     Dosage: 600 MILLIGRAM, QD, DOSES UP TO 600 MG PER DAY
     Route: 065
  24. CITALOPRAM [Suspect]
     Active Substance: CITALOPRAM HYDROBROMIDE
     Indication: Depression
     Dosage: UP TO 20 MG PER DAY START DATE 2015
  25. CITALOPRAM [Suspect]
     Active Substance: CITALOPRAM HYDROBROMIDE
     Dosage: 20 MILLIGRAM, QD
  26. MOMETASONE [Concomitant]
     Active Substance: MOMETASONE
     Indication: Psoriasis
     Dosage: UNK
     Route: 061
  27. PROPRANOLOL [Concomitant]
     Active Substance: PROPRANOLOL HYDROCHLORIDE
     Indication: Tremor
     Dosage: 10 MILLIGRAM, QD

REACTIONS (9)
  - Therapeutic product effect incomplete [Unknown]
  - Suicide attempt [Recovered/Resolved]
  - Mania [Unknown]
  - Suicidal ideation [Recovered/Resolved]
  - Tremor [Recovering/Resolving]
  - Depression [Unknown]
  - Treatment noncompliance [Recovered/Resolved]
  - Drug ineffective [Recovered/Resolved]
  - Therapeutic response unexpected [Unknown]

NARRATIVE: CASE EVENT DATE: 20130101
